FAERS Safety Report 16660106 (Version 1)
Quarter: 2019Q3

REPORT INFORMATION
  Report Type: Spontaneous
  Country: US (occurrence: US)
  Receive Date: 20190618
  Receipt Date: 20190618
  Transmission Date: 20191004
  Serious: Yes (Other)
  Sender: FDA-Public Use
  Company Number: None

PATIENT
  Age: 18 Year
  Sex: Male

DRUGS (1)
  1. CREST/WHITENING SYSTEMS STRIPS WHTESTRIPS GENTLE ROUTINE NO FLAVOR-SCE [Suspect]
     Active Substance: HYDROGEN PEROXIDE
     Dosage: ?          OTHER DOSE:1 APPLICATION ;OTHER ROUTE:INTRAORAL?
     Dates: end: 201905

REACTIONS (1)
  - Tooth loss [None]

NARRATIVE: CASE EVENT DATE: 20190522
